FAERS Safety Report 6742755-7 (Version None)
Quarter: 2010Q2

REPORT INFORMATION
  Report Type: 
  Country: None (occurrence: None)
  Receive Date: 20100525
  Receipt Date: 20100511
  Transmission Date: 20101027
  Serious: Yes (Hospitalization)
  Sender: FDA-Public Use
  Company Number: 2010SP001362

PATIENT
  Age: 69 Year
  Sex: Female
  Weight: 109.9 kg

DRUGS (19)
  1. XOPENEX [Suspect]
     Indication: CHRONIC OBSTRUCTIVE PULMONARY DISEASE
     Dosage: INHALATION
     Route: 055
     Dates: start: 20100323, end: 20100408
  2. XOPENEX [Suspect]
     Indication: CHRONIC OBSTRUCTIVE PULMONARY DISEASE
     Dosage: INHALATION
     Route: 055
     Dates: start: 20100417, end: 20100427
  3. XOPENEX [Suspect]
     Indication: CHRONIC OBSTRUCTIVE PULMONARY DISEASE
     Dosage: INHALATION
     Route: 055
     Dates: start: 20100430, end: 20100507
  4. XOPENEX HFA INHALATION [Concomitant]
  5. AEROSOL [Concomitant]
  6. PROTONIX [Concomitant]
  7. PEPCID [Concomitant]
  8. PROVIGIL [Concomitant]
  9. ATROVENT [Concomitant]
  10. AMIODARONE [Concomitant]
  11. ASPIRIN [Concomitant]
  12. LIPITOR [Concomitant]
  13. ARANESP [Concomitant]
  14. BENADRYL [Concomitant]
  15. NITROGLYCERIN COMP [Concomitant]
  16. SOLU-MEDROL [Concomitant]
  17. JANUVIA [Concomitant]
  18. COUMADIN [Concomitant]
  19. XOPENEX [Concomitant]

REACTIONS (3)
  - CARDIAC DISORDER [None]
  - RASH [None]
  - RENAL FAILURE ACUTE [None]
